FAERS Safety Report 24019152 (Version 3)
Quarter: 2024Q3

REPORT INFORMATION
  Report Type: Spontaneous
  Country: HR (occurrence: HR)
  Receive Date: 20240627
  Receipt Date: 20240702
  Transmission Date: 20241016
  Serious: Yes (Life-Threatening, Hospitalization)
  Sender: PFIZER
  Company Number: HR-FARMALCRO-20241575

PATIENT
  Age: 67 Year
  Sex: Male

DRUGS (11)
  1. POTASSIUM CITRATE [Suspect]
     Active Substance: POTASSIUM CITRATE
     Dosage: 2 DF, 2X/DAY (TWO SACHETS IN THE MORNING, AND TWO SACHETS IN THE EVENING)
     Route: 048
  2. CITRIC ACID MONOHYDRATE\POTASSIUM BICARBONATE\POTASSIUM CITRATE [Suspect]
     Active Substance: CITRIC ACID MONOHYDRATE\POTASSIUM BICARBONATE\POTASSIUM CITRATE
     Dosage: 2/2 G (2 EFFERVESCENT TABLET AND 1 EFFERVESCENT TABLET ALTERNATELY EVERY DAY)
     Route: 048
  3. PANTOPRAZOLE [Concomitant]
     Active Substance: PANTOPRAZOLE
     Dosage: 40 MG
     Route: 065
  4. BISOPROLOL [Concomitant]
     Active Substance: BISOPROLOL\BISOPROLOL FUMARATE
     Dosage: 10 MG
     Route: 065
  5. AMIODARONE HYDROCHLORIDE [Concomitant]
     Active Substance: AMIODARONE HYDROCHLORIDE
     Dosage: 200 MG
  6. EPLERENONE [Concomitant]
     Active Substance: EPLERENONE
     Dosage: 25 MG
  7. SACUBITRIL\VALSARTAN [Concomitant]
     Active Substance: SACUBITRIL\VALSARTAN
     Dosage: 1 DF, 2X/DAY (49/51 MG 2 X 1 TABLET)
  8. RIVAROXABAN [Concomitant]
     Active Substance: RIVAROXABAN
     Dosage: 20 MG
  9. FUROSEMIDE [Concomitant]
     Active Substance: FUROSEMIDE
     Dosage: 500 MG
  10. ATORVASTATIN [Concomitant]
     Active Substance: ATORVASTATIN
     Dosage: 20 MG
  11. SULFASALAZINE [Concomitant]
     Active Substance: SULFASALAZINE
     Dosage: 500 MG (2 X 1 TABLET)
     Route: 048

REACTIONS (2)
  - Hyperkalaemia [Recovering/Resolving]
  - Incorrect dose administered [Recovering/Resolving]

NARRATIVE: CASE EVENT DATE: 20210601
